FAERS Safety Report 9210304 (Version 1)
Quarter: 2013Q2

REPORT INFORMATION
  Report Type: Spontaneous
  Country: US (occurrence: US)
  Receive Date: 20130404
  Receipt Date: 20130404
  Transmission Date: 20140414
  Serious: No
  Sender: FDA-Public Use
  Company Number: US-009507513-1304USA000736

PATIENT
  Sex: Female
  Weight: 80.73 kg

DRUGS (4)
  1. SAPHRIS [Suspect]
     Indication: PSYCHOTIC DISORDER
     Dosage: 10 MG, BID
     Route: 048
  2. SEROQUEL [Concomitant]
  3. LAMOTRIGINE [Concomitant]
  4. PAROXET [Concomitant]
     Dosage: UNK

REACTIONS (1)
  - Jaw disorder [Recovered/Resolved]
